FAERS Safety Report 7655939-0 (Version None)
Quarter: 2011Q3

REPORT INFORMATION
  Report Type: 
  Country: None (occurrence: None)
  Receive Date: 20110801
  Receipt Date: 20110718
  Transmission Date: 20111222
  Serious: Yes (Hospitalization, Other)
  Sender: FDA-Public Use
  Company Number: AUR-APL-2011-00621

PATIENT
  Sex: Male
  Weight: 2.4 kg

DRUGS (6)
  1. MIRTAZAPINE [Suspect]
     Indication: PRODUCT USED FOR UNKNOWN INDICATION
     Dosage: TRANSPLACENTAL
     Route: 064
  2. MIRTAZAPINE [Suspect]
     Indication: EXPOSURE DURING BREAST FEEDING
     Dosage: TRANSPLACENTAL
     Route: 064
  3. OLANZAPINE [Suspect]
     Indication: EXPOSURE DURING BREAST FEEDING
     Dosage: TRANSPLACENTAL
     Route: 064
  4. OLANZAPINE [Suspect]
     Indication: PRODUCT USED FOR UNKNOWN INDICATION
     Dosage: TRANSPLACENTAL
     Route: 064
  5. VENLAFAXINE [Suspect]
     Indication: PRODUCT USED FOR UNKNOWN INDICATION
     Dosage: TRANSPLACENTAL
     Route: 064
  6. VENLAFAXINE [Suspect]
     Indication: EXPOSURE DURING BREAST FEEDING
     Dosage: TRANSPLACENTAL
     Route: 064

REACTIONS (9)
  - GASTROOESOPHAGEAL REFLUX DISEASE [None]
  - FEEDING DISORDER NEONATAL [None]
  - SEPSIS NEONATAL [None]
  - COUGH [None]
  - RESTLESSNESS [None]
  - DRUG WITHDRAWAL SYNDROME NEONATAL [None]
  - MATERNAL DRUGS AFFECTING FOETUS [None]
  - EXPOSURE DURING BREAST FEEDING [None]
  - VOMITING NEONATAL [None]
